FAERS Safety Report 7569627-2 (Version None)
Quarter: 2011Q2

REPORT INFORMATION
  Report Type: 
  Country: None (occurrence: None)
  Receive Date: 20110624
  Receipt Date: 20110620
  Transmission Date: 20111010
  Serious: No
  Sender: FDA-Public Use
  Company Number: US-PFIZER INC-2008070408

PATIENT
  Sex: Male
  Weight: 95.454 kg

DRUGS (10)
  1. VESICARE [Concomitant]
  2. PENTOXIFYLLINE [Concomitant]
  3. GABAPENTIN [Concomitant]
     Indication: CARDIOVASCULAR DISORDER
  4. WELLBUTRIN [Concomitant]
  5. METOPROLOL TARTRATE [Concomitant]
     Dosage: 2.5 MG, 2X/DAY
  6. COPAXONE [Concomitant]
  7. KEPPRA [Concomitant]
  8. LIPITOR [Concomitant]
  9. VIAGRA [Suspect]
     Indication: ERECTILE DYSFUNCTION
     Dosage: 50 MG, AS NEEDED
     Route: 048
     Dates: start: 20070615
  10. VIAGRA [Suspect]
     Dosage: 100 MG, AS NEEDED
     Route: 048
     Dates: start: 20100610

REACTIONS (1)
  - DRUG INEFFECTIVE [None]
